FAERS Safety Report 20169672 (Version 4)
Quarter: 2023Q4

REPORT INFORMATION
  Report Type: Spontaneous
  Country: US (occurrence: US)
  Receive Date: 20211210
  Receipt Date: 20231129
  Transmission Date: 20240110
  Serious: Yes (Other)
  Sender: FDA-Public Use
  Company Number: US-Accord-247149

PATIENT
  Age: 40 Year
  Sex: Female
  Weight: 80 kg

DRUGS (7)
  1. DOCETAXEL [Suspect]
     Active Substance: DOCETAXEL\DOCETAXEL ANHYDROUS
     Indication: Breast cancer
     Dosage: 250CC NS; NUMBER OF CYCLES: 5; EVERY 3 WEEKS
     Route: 042
     Dates: start: 20160720, end: 20160720
  2. CYTOXAN [Suspect]
     Active Substance: CYCLOPHOSPHAMIDE
     Indication: Chemotherapy
  3. ADRIAMYCIN [Suspect]
     Active Substance: DOXORUBICIN HYDROCHLORIDE
     Indication: Chemotherapy
  4. DOCETAXEL [Suspect]
     Active Substance: DOCETAXEL\DOCETAXEL ANHYDROUS
     Indication: Breast cancer
     Dosage: 250CC NS; EVERY 3 WEEKS; NUMBER OF CYCLES: 5
     Route: 042
     Dates: start: 20160810, end: 20160810
  5. DOCETAXEL [Suspect]
     Active Substance: DOCETAXEL\DOCETAXEL ANHYDROUS
     Indication: Breast cancer
     Dosage: 250CC NS; NUMBER OF CYCLES: 5; EVERY 3 WEEKS
     Route: 042
     Dates: start: 20160831, end: 20160831
  6. DOCETAXEL [Suspect]
     Active Substance: DOCETAXEL\DOCETAXEL ANHYDROUS
     Indication: Breast cancer
     Dosage: 250CC NS; EVERY 3 WEEKS; NUMBER OF CYCLES: 5
     Route: 042
     Dates: start: 20160914, end: 20160914
  7. DOCETAXEL [Suspect]
     Active Substance: DOCETAXEL\DOCETAXEL ANHYDROUS
     Indication: Breast cancer
     Dosage: 250CC NS; NUMBER OF CYCLES: 5; EVERY 3 WEEKS
     Route: 042
     Dates: start: 20160928, end: 20160928

REACTIONS (4)
  - Periorbital cellulitis [Unknown]
  - Conjunctivitis viral [Unknown]
  - Dry eye [Not Recovered/Not Resolved]
  - Dacryostenosis acquired [Not Recovered/Not Resolved]

NARRATIVE: CASE EVENT DATE: 20160720
